FAERS Safety Report 18398755 (Version 3)
Quarter: 2022Q1

REPORT INFORMATION
  Report Type: Spontaneous
  Country: US (occurrence: US)
  Receive Date: 20201019
  Receipt Date: 20220308
  Transmission Date: 20220423
  Serious: No
  Sender: FDA-Public Use
  Company Number: US-PFIZER INC-2020401385

PATIENT
  Age: 61 Year
  Sex: Female

DRUGS (3)
  1. XELJANZ XR [Suspect]
     Active Substance: TOFACITINIB CITRATE
     Indication: Rheumatoid arthritis
     Dosage: 11 MG, DAILY
     Route: 048
     Dates: start: 201912
  2. XELJANZ XR [Suspect]
     Active Substance: TOFACITINIB CITRATE
     Dosage: 11 MG, DAILY
     Route: 048
     Dates: start: 202001
  3. XELJANZ XR [Suspect]
     Active Substance: TOFACITINIB CITRATE
     Dosage: 11 MG, 1X/DAY
     Route: 048
     Dates: start: 202001

REACTIONS (8)
  - Headache [Unknown]
  - COVID-19 [Unknown]
  - Product dose omission issue [Unknown]
  - Arthritis [Unknown]
  - Joint swelling [Recovering/Resolving]
  - Pain [Unknown]
  - Musculoskeletal stiffness [Unknown]
  - Remission not achieved [Unknown]

NARRATIVE: CASE EVENT DATE: 20201201
